FAERS Safety Report 18536167 (Version 1)
Quarter: 2020Q4

REPORT INFORMATION
  Report Type: Spontaneous
  Country: US (occurrence: US)
  Receive Date: 20201124
  Receipt Date: 20201124
  Transmission Date: 20210114
  Serious: No
  Sender: FDA-Public Use
  Company Number: US-AUROBINDO-AUR-APL-2020-007521

PATIENT
  Age: 57 Year
  Sex: Female
  Weight: 57.6 kg

DRUGS (4)
  1. XIFAXAN [Concomitant]
     Active Substance: RIFAXIMIN
     Indication: PRODUCT USED FOR UNKNOWN INDICATION
     Dosage: UNK
     Route: 065
  2. NEOMYCIN. [Concomitant]
     Active Substance: NEOMYCIN
     Indication: PRODUCT USED FOR UNKNOWN INDICATION
     Dosage: UNK
     Route: 065
  3. LOSARTAN POTASSIUM TABLETS USP 100MG [Suspect]
     Active Substance: LOSARTAN POTASSIUM
     Indication: HYPERTENSION
     Dosage: 1 DOSAGE FORM, ONCE A DAY
     Route: 065
     Dates: start: 201908, end: 20200205
  4. HYDROCHLOROTHIAZIDE. [Concomitant]
     Active Substance: HYDROCHLOROTHIAZIDE
     Indication: PRODUCT USED FOR UNKNOWN INDICATION
     Dosage: UNK
     Route: 065

REACTIONS (9)
  - Abdominal distension [Recovering/Resolving]
  - Tendon discomfort [Recovering/Resolving]
  - Nausea [Recovering/Resolving]
  - Product substitution issue [Unknown]
  - Palpitations [Recovering/Resolving]
  - Abdominal pain [Recovering/Resolving]
  - Tendon pain [Recovering/Resolving]
  - Constipation [Recovering/Resolving]
  - Micturition disorder [Recovering/Resolving]

NARRATIVE: CASE EVENT DATE: 201908
